FAERS Safety Report 5301754-2 (Version None)
Quarter: 2007Q2

REPORT INFORMATION
  Report Type: 
  Country: None (occurrence: None)
  Receive Date: 20070419
  Receipt Date: 20070413
  Transmission Date: 20071010
  Serious: Yes (Death)
  Sender: FDA-Public Use
  Company Number: CH-JNJFOC-20070403212

PATIENT
  Age: 73 Year
  Sex: Female
  Weight: 73 kg

DRUGS (15)
  1. RISPERDAL [Suspect]
     Dosage: ONE TO THREE MG DAILY
     Route: 048
  2. RISPERDAL [Suspect]
     Route: 048
  3. RISPERDAL [Suspect]
     Indication: DRUG USE FOR UNKNOWN INDICATION
     Route: 048
  4. ZYPREXA [Concomitant]
     Route: 048
  5. ZYPREXA [Concomitant]
     Route: 048
  6. ZYPREXA [Concomitant]
     Route: 048
  7. TOLVON [Concomitant]
     Route: 048
  8. TOLVON [Concomitant]
     Route: 048
  9. TOLVON [Concomitant]
     Route: 048
  10. TEMESTA [Concomitant]
     Route: 048
  11. TEMESTA [Concomitant]
     Route: 048
  12. TEMESTA [Concomitant]
     Route: 048
  13. TEMESTA [Concomitant]
     Dosage: ONE TO THREE MG DAILY
     Route: 048
  14. EMSELEX [Concomitant]
     Route: 048
  15. PANTOZOL [Concomitant]
     Route: 048

REACTIONS (1)
  - CHOKING [None]
